FAERS Safety Report 14650914 (Version 2)
Quarter: 2018Q1

REPORT INFORMATION
  Report Type: Report from Study
  Country: AU (occurrence: AU)
  Receive Date: 20180316
  Receipt Date: 20180326
  Transmission Date: 20180509
  Serious: Yes (Hospitalization, Other)
  Sender: FDA-Public Use
  Company Number: AU-TAKEDA-2018TUS005816

PATIENT
  Age: 60 Year
  Sex: Male
  Weight: 91.1 kg

DRUGS (14)
  1. CALCIUM [Concomitant]
     Active Substance: CALCIUM
     Dosage: 500 MG, QD
     Route: 048
     Dates: start: 201601
  2. EASE A COLD DAY + NIGHT [Concomitant]
     Indication: ANTIVIRAL PROPHYLAXIS
     Dosage: UNK
     Route: 048
     Dates: start: 20170709
  3. ALLOPURINOL. [Concomitant]
     Active Substance: ALLOPURINOL
     Indication: GOUT
     Dosage: 300 MG, QD
     Route: 048
     Dates: start: 20161014
  4. LEMSIP MAX COLD AND FLU WITH DECONGESTANT [Concomitant]
     Indication: INFLUENZA
  5. ADVANTAN [Concomitant]
     Active Substance: METHYLPREDNISOLONE ACEPONATE
     Indication: RASH
     Dosage: UNK
     Dates: start: 20170821
  6. VITAMIN D [Concomitant]
     Active Substance: CHOLECALCIFEROL
     Dosage: UNK UNK, QD
     Route: 048
     Dates: start: 201601
  7. LEMSIP MAX COLD AND FLU WITH DECONGESTANT [Concomitant]
     Indication: NASOPHARYNGITIS
     Dosage: UNK
     Route: 048
     Dates: start: 20170709
  8. FISH OIL [Concomitant]
     Active Substance: FISH OIL
     Dosage: 500 MG, QD
     Route: 048
     Dates: start: 201601
  9. AZATHIOPRINE. [Concomitant]
     Active Substance: AZATHIOPRINE
     Indication: CROHN^S DISEASE
     Dosage: 25 MG, QD
     Route: 048
     Dates: start: 20161014
  10. SYMBICORT [Concomitant]
     Active Substance: BUDESONIDE\FORMOTEROL FUMARATE DIHYDRATE
     Indication: ASTHMA PROPHYLAXIS
     Dosage: 200 UG, UNK
     Route: 055
     Dates: start: 20170503
  11. VEDOLIZUMAB [Suspect]
     Active Substance: VEDOLIZUMAB
     Indication: CROHN^S DISEASE
     Dosage: 108 MG, Q2WEEKS
     Route: 058
     Dates: start: 20170501
  12. COLCHICINE. [Concomitant]
     Active Substance: COLCHICINE
     Indication: GOUT
     Dosage: 500 UG, UNK
     Route: 048
     Dates: start: 20180206
  13. TELMISARTAN. [Concomitant]
     Active Substance: TELMISARTAN
     Indication: HYPERTENSION
     Dosage: 40 MG, QD
     Route: 048
     Dates: start: 20150623
  14. ATROVENT [Concomitant]
     Active Substance: IPRATROPIUM BROMIDE
     Indication: RHINORRHOEA
     Dosage: UNK
     Route: 045
     Dates: start: 20170709

REACTIONS (1)
  - Lip squamous cell carcinoma [Recovered/Resolved]

NARRATIVE: CASE EVENT DATE: 20180219
